FAERS Safety Report 22125349 (Version 4)
Quarter: 2023Q2

REPORT INFORMATION
  Report Type: Spontaneous
  Country: US (occurrence: US)
  Receive Date: 20230322
  Receipt Date: 20230504
  Transmission Date: 20230721
  Serious: Yes (Hospitalization, Other)
  Sender: FDA-Public Use
  Company Number: US-Blueprint Medicines Corporation-SP-US-2023-000541

PATIENT
  Age: 78 Year
  Sex: Female
  Weight: 105.6 kg

DRUGS (20)
  1. AYVAKIT [Suspect]
     Active Substance: AVAPRITINIB
     Indication: Gastrointestinal stromal tumour
     Dosage: TAKE 1 TABLET BY MOUTH DAILY WITH 100 MG TABLET FOR TOTAL DAILY DOSE OF 150 MG
     Route: 048
     Dates: start: 20210624
  2. AYVAKIT [Suspect]
     Active Substance: AVAPRITINIB
     Dosage: TAKE 1 TABLET BY MOUTH DAILY WITH 50 MG TABLET FOR TOTAL DAILY DOSE OF 150 MG
     Route: 048
     Dates: start: 20210624
  3. AYVAKIT [Suspect]
     Active Substance: AVAPRITINIB
     Dosage: TAKE 1 TABLET BY MOUTH WITH 100 MG TABLET FOR 150 MG TOTAL DAILY
     Route: 048
  4. AYVAKIT [Suspect]
     Active Substance: AVAPRITINIB
     Dosage: TAKE 1 TABLET BY MOUTH WITH 100 MG TABLET FOR 150 MG TOTAL DAILY
     Route: 048
  5. AYVAKIT [Suspect]
     Active Substance: AVAPRITINIB
     Route: 065
     Dates: start: 20220927
  6. AYVAKIT [Suspect]
     Active Substance: AVAPRITINIB
     Route: 065
     Dates: start: 202107, end: 20211019
  7. AYVAKIT [Suspect]
     Active Substance: AVAPRITINIB
     Route: 065
     Dates: start: 20221021
  8. AYVAKIT [Suspect]
     Active Substance: AVAPRITINIB
     Route: 065
     Dates: start: 202211, end: 202302
  9. AYVAKIT [Suspect]
     Active Substance: AVAPRITINIB
     Route: 048
     Dates: start: 20221019
  10. AYVAKIT [Suspect]
     Active Substance: AVAPRITINIB
     Route: 048
     Dates: start: 20221122
  11. ASPIRIN [Concomitant]
     Active Substance: ASPIRIN
     Indication: Product used for unknown indication
     Route: 065
  12. PEPCID [Concomitant]
     Active Substance: FAMOTIDINE
     Indication: Product used for unknown indication
     Route: 048
  13. FERROUS SULFATE [Concomitant]
     Active Substance: FERROUS SULFATE
     Indication: Product used for unknown indication
     Route: 048
  14. LASIX [Concomitant]
     Active Substance: FUROSEMIDE
     Indication: Product used for unknown indication
     Route: 048
     Dates: start: 20230207
  15. PRINIVIL [Concomitant]
     Active Substance: LISINOPRIL
     Indication: Product used for unknown indication
     Route: 048
     Dates: start: 20230227
  16. ZESTRIL [Concomitant]
     Active Substance: LISINOPRIL
     Indication: Product used for unknown indication
     Route: 048
     Dates: start: 20230227
  17. ZOFRAN [Concomitant]
     Active Substance: ONDANSETRON HYDROCHLORIDE
     Indication: Nausea
     Route: 048
     Dates: start: 20220913
  18. PROTONIX [Concomitant]
     Active Substance: PANTOPRAZOLE SODIUM
     Indication: Product used for unknown indication
     Route: 048
     Dates: start: 20210920
  19. SENOKOT [Concomitant]
     Active Substance: SENNOSIDES
     Indication: Product used for unknown indication
     Route: 048
  20. NORCO [Concomitant]
     Active Substance: ACETAMINOPHEN\HYDROCODONE BITARTRATE
     Indication: Pain
     Dosage: 10-325 MG PER TABLET, 1-2 TABLETS Q4H PRN PAIN
     Route: 048
     Dates: start: 20220913

REACTIONS (20)
  - Ocular toxicity [Unknown]
  - Adverse drug reaction [Unknown]
  - Neoplasm progression [Unknown]
  - Myocardial ischaemia [Unknown]
  - Eye infection [Recovered/Resolved]
  - Eye inflammation [Recovered/Resolved]
  - Vomiting [Unknown]
  - Alopecia [Unknown]
  - Eye swelling [Unknown]
  - Food intolerance [Unknown]
  - Drug ineffective [Unknown]
  - Drug intolerance [Unknown]
  - Cognitive disorder [Unknown]
  - Abdominal pain [Unknown]
  - Fatigue [Unknown]
  - Pain [Unknown]
  - Anaemia [Unknown]
  - Pruritus [Unknown]
  - Humerus fracture [Unknown]
  - Lipoma [Unknown]

NARRATIVE: CASE EVENT DATE: 20220722
